FAERS Safety Report 25474348 (Version 1)
Quarter: 2025Q2

REPORT INFORMATION
  Report Type: Spontaneous
  Country: US (occurrence: US)
  Receive Date: 20250624
  Receipt Date: 20250624
  Transmission Date: 20250716
  Serious: No
  Sender: KRAMER LABORATORIES
  Company Number: US-KRAMERLABS-2024-US-041577

PATIENT
  Age: 45 Year
  Sex: Female
  Weight: 111.13 kg

DRUGS (3)
  1. NIZORAL [Suspect]
     Active Substance: KETOCONAZOLE
     Indication: Dandruff
     Route: 061
     Dates: start: 20240801
  2. COSMETICS [Suspect]
     Active Substance: COSMETICS
     Route: 061
     Dates: start: 20240801
  3. NORETHINDRONE [Concomitant]
     Active Substance: NORETHINDRONE

REACTIONS (1)
  - Pruritus [Not Recovered/Not Resolved]

NARRATIVE: CASE EVENT DATE: 20240801
